FAERS Safety Report 7912652-X (Version None)
Quarter: 2011Q4

REPORT INFORMATION
  Report Type: 
  Country: None (occurrence: None)
  Receive Date: 20111114
  Receipt Date: 20111103
  Transmission Date: 20120403
  Serious: Yes (Other)
  Sender: FDA-Public Use
  Company Number: DE-CUBIST-2011S1000773

PATIENT
  Age: 78 Year
  Sex: Male

DRUGS (3)
  1. CUBICIN [Suspect]
     Indication: ABSCESS
     Dates: start: 20110815, end: 20110904
  2. CUBICIN [Suspect]
     Indication: OSTEOMYELITIS
     Dates: start: 20110815, end: 20110904
  3. LEVOFLOXACIN [Concomitant]
     Indication: PRODUCT USED FOR UNKNOWN INDICATION
     Route: 065

REACTIONS (9)
  - HYPOTENSION [None]
  - BLOOD CREATININE INCREASED [None]
  - MULTI-ORGAN DISORDER [None]
  - HEART RATE INCREASED [None]
  - URINE OUTPUT DECREASED [None]
  - ACUTE LUNG INJURY [None]
  - WHITE BLOOD CELL COUNT ABNORMAL [None]
  - MENTAL STATUS CHANGES [None]
  - ACUTE RESPIRATORY DISTRESS SYNDROME [None]
